FAERS Safety Report 21510872 (Version 2)
Quarter: 2022Q4

REPORT INFORMATION
  Report Type: Spontaneous
  Country: JP (occurrence: JP)
  Receive Date: 20221026
  Receipt Date: 20221107
  Transmission Date: 20230112
  Serious: Yes (Other)
  Sender: FDA-Public Use
  Company Number: JP-NOVARTISPH-NVSJ2022JP099632

PATIENT
  Age: 45 Year
  Sex: Female

DRUGS (4)
  1. METHOTREXATE [Suspect]
     Active Substance: METHOTREXATE
     Indication: Product used for unknown indication
     Dosage: UNK
     Route: 065
  2. NEORAL [Concomitant]
     Active Substance: CYCLOSPORINE
     Indication: Bone marrow transplant
     Dosage: UNK
     Route: 065
  3. NEORAL [Concomitant]
     Active Substance: CYCLOSPORINE
     Indication: Prophylaxis against transplant rejection
  4. NEORAL [Concomitant]
     Active Substance: CYCLOSPORINE
     Indication: Prophylaxis against graft versus host disease

REACTIONS (2)
  - Interstitial lung disease [Unknown]
  - Dermatomyositis [Unknown]
